FAERS Safety Report 5230300-7 (Version None)
Quarter: 2007Q1

REPORT INFORMATION
  Report Type: 
  Country: None (occurrence: None)
  Receive Date: 20070206
  Receipt Date: 20070125
  Transmission Date: 20070707
  Serious: Yes (Hospitalization)
  Sender: FDA-Public Use
  Company Number: NL-BAYER-200616132GDS

PATIENT
  Age: 54 Year
  Sex: Male
  Weight: 96 kg

DRUGS (13)
  1. SORAFENIB [Suspect]
     Indication: NON-SMALL CELL LUNG CANCER
     Dosage: TOTAL DAILY DOSE: 800 MG
     Route: 048
     Dates: start: 20061117
  2. CARBOPLATIN [Suspect]
     Indication: NON-SMALL CELL LUNG CANCER
     Route: 042
     Dates: start: 20061116, end: 20061116
  3. PACLITAXEL [Suspect]
     Indication: NON-SMALL CELL LUNG CANCER
     Route: 042
     Dates: start: 20061116, end: 20061116
  4. TRAMADOL HCL [Concomitant]
     Indication: UNEVALUABLE EVENT
     Route: 048
  5. FERROFUMARAT [Concomitant]
     Indication: UNEVALUABLE EVENT
     Route: 048
  6. METOCLOPRAMIDE [Concomitant]
     Indication: UNEVALUABLE EVENT
     Route: 048
  7. TEMAZEPAM [Concomitant]
     Indication: UNEVALUABLE EVENT
     Route: 048
  8. METOPROLOL SUCCINATE [Concomitant]
     Indication: UNEVALUABLE EVENT
     Route: 048
  9. CARBASALATE CALCIUM [Concomitant]
     Indication: UNEVALUABLE EVENT
     Route: 048
  10. AUGMENTIN '125' [Concomitant]
     Indication: UNEVALUABLE EVENT
     Route: 048
  11. LIPITOR [Concomitant]
     Indication: UNEVALUABLE EVENT
     Route: 048
  12. LISINOPRIL [Concomitant]
     Indication: UNEVALUABLE EVENT
     Route: 048
  13. DICLOFENAC SODIUM [Concomitant]
     Indication: UNEVALUABLE EVENT
     Route: 048

REACTIONS (1)
  - CONFUSIONAL STATE [None]
